FAERS Safety Report 7039371-9 (Version None)
Quarter: 2010Q4

REPORT INFORMATION
  Report Type: 
  Country: None (occurrence: None)
  Receive Date: 20101012
  Receipt Date: 20101007
  Transmission Date: 20110411
  Serious: Yes (Hospitalization)
  Sender: FDA-Public Use
  Company Number: AR-BRISTOL-MYERS SQUIBB COMPANY-15225642

PATIENT
  Age: 38 Year
  Sex: Male

DRUGS (4)
  1. REYATAZ [Suspect]
     Indication: HIV INFECTION
     Dates: start: 20100701
  2. TRUVADA [Suspect]
     Indication: HIV INFECTION
     Dates: start: 20100701
  3. RITONAVIR [Suspect]
     Indication: HIV INFECTION
     Dates: start: 20100701
  4. GABAPENTIN [Concomitant]

REACTIONS (2)
  - ANTIPHOSPHOLIPID SYNDROME [None]
  - RAYNAUD'S PHENOMENON [None]
